FAERS Safety Report 7077832-7 (Version None)
Quarter: 2010Q4

REPORT INFORMATION
  Report Type: 
  Country: None (occurrence: None)
  Receive Date: 20101101
  Receipt Date: 20101027
  Transmission Date: 20110411
  Serious: Yes (Death, Hospitalization)
  Sender: FDA-Public Use
  Company Number: PHHY2010US70729

PATIENT
  Sex: Male
  Weight: 66 kg

DRUGS (2)
  1. EXJADE [Suspect]
     Indication: APLASTIC ANAEMIA
     Dosage: 1250 MG DAILY
     Route: 048
     Dates: start: 20100309, end: 20100927
  2. BETA BLOCKING AGENTS [Concomitant]

REACTIONS (2)
  - CARDIAC FAILURE CHRONIC [None]
  - CARDIOMYOPATHY [None]
